FAERS Safety Report 11155771 (Version 1)
Quarter: 2015Q2

REPORT INFORMATION
  Report Type: Spontaneous
  Country: US (occurrence: None)
  Receive Date: 20150601
  Receipt Date: 20150601
  Transmission Date: 20150821
  Serious: Yes (Disabling)
  Sender: FDA-Public Use
  Company Number: None

PATIENT
  Age: 54 Year
  Sex: Female
  Weight: 107.5 kg

DRUGS (12)
  1. BENZTROPINE [Concomitant]
     Active Substance: BENZTROPINE
  2. RISDONECH [Concomitant]
  3. HYDROXYINE [Concomitant]
  4. LISINOPRIL. [Concomitant]
     Active Substance: LISINOPRIL
  5. ITCHIN [Concomitant]
  6. RISPERDAL AND RISPERIDONE, 2MG MORNING, 1 NOON 2 NIGHTLY ZIDUS PHARPACY, INTEGRITY PHARMACY [Suspect]
     Active Substance: RISPERIDONE
     Indication: MUSCLE DISORDER
     Dosage: 4MG X 2 4 NIGHTLY, 2 MG MORNING 2 NOON?2 NIGHT?2 BRY?4MG X 2 BEDTIME?INJECTION EVERY 2 WEEKS ?4 MG X 2 NIGHTLY
     Route: 042
     Dates: start: 201403, end: 201405
  7. HERBAL AGENTS [Concomitant]
  8. RISPERDAL AND RISPERIDONE, 2MG MORNING, 1 NOON 2 NIGHTLY ZIDUS PHARPACY, INTEGRITY PHARMACY [Suspect]
     Active Substance: RISPERIDONE
     Indication: GAIT DISTURBANCE
     Dosage: 4MG X 2 4 NIGHTLY, 2 MG MORNING 2 NOON?2 NIGHT?2 BRY?4MG X 2 BEDTIME?INJECTION EVERY 2 WEEKS ?4 MG X 2 NIGHTLY
     Route: 042
     Dates: start: 201403, end: 201405
  9. CERTINE [Concomitant]
  10. FLOSAPE [Concomitant]
  11. AMLOTIPINE [Concomitant]
  12. VITAMIN D [Concomitant]
     Active Substance: CHOLECALCIFEROL

REACTIONS (5)
  - Asthenia [None]
  - Dry mouth [None]
  - Muscle spasms [None]
  - Weight increased [None]
  - Weight decreased [None]

NARRATIVE: CASE EVENT DATE: 20140527
